FAERS Safety Report 16697083 (Version 1)
Quarter: 2019Q3

REPORT INFORMATION
  Report Type: Spontaneous
  Country: US (occurrence: US)
  Receive Date: 20190813
  Receipt Date: 20190813
  Transmission Date: 20191004
  Serious: No
  Sender: FDA-Public Use
  Company Number: US-PFIZER INC-2019237279

PATIENT
  Age: 63 Year
  Sex: Male
  Weight: 90.7 kg

DRUGS (5)
  1. RAPAMUNE [Suspect]
     Active Substance: SIROLIMUS
     Indication: SKIN CANCER
  2. RAPAMUNE [Suspect]
     Active Substance: SIROLIMUS
     Indication: HEART TRANSPLANT REJECTION
     Dosage: 1 MG, DAILY (TAKING 2 AT A TIME ONCE A DAY )
     Route: 048
     Dates: start: 20190723
  3. TACROLIMUS. [Concomitant]
     Active Substance: TACROLIMUS
     Indication: TRANSPLANT REJECTION
     Dosage: 1 MG, 2X/DAY
     Dates: start: 201505
  4. RAPAMUNE [Suspect]
     Active Substance: SIROLIMUS
     Indication: HEART TRANSPLANT
     Dosage: 0.5 MG, DAILY
     Route: 048
  5. PRAVASTATIN. [Concomitant]
     Active Substance: PRAVASTATIN
     Indication: PROPHYLAXIS
     Dosage: 20 MG, 1X/DAY
     Dates: start: 201505

REACTIONS (2)
  - Drug effective for unapproved indication [Unknown]
  - Off label use [Unknown]
